FAERS Safety Report 18594462 (Version 2)
Quarter: 2021Q1

REPORT INFORMATION
  Report Type: Spontaneous
  Country: US (occurrence: US)
  Receive Date: 20201209
  Receipt Date: 20210106
  Transmission Date: 20210419
  Serious: Yes (Hospitalization)
  Sender: FDA-Public Use
  Company Number: US-SA-2020SA350290

PATIENT

DRUGS (1)
  1. AUBAGIO [Suspect]
     Active Substance: TERIFLUNOMIDE
     Indication: MULTIPLE SCLEROSIS
     Dosage: 14 MG, QD
     Route: 048

REACTIONS (7)
  - COVID-19 [Unknown]
  - Hospice care [Unknown]
  - Pyrexia [Unknown]
  - Vital functions abnormal [Unknown]
  - Somnolence [Unknown]
  - Pain [Unknown]
  - Feeding disorder [Unknown]

NARRATIVE: CASE EVENT DATE: 2020
